FAERS Safety Report 4470007-7 (Version None)
Quarter: 2004Q3

REPORT INFORMATION
  Report Type: 
  Country: None (occurrence: None)
  Receive Date: 20040917
  Receipt Date: 20040326
  Transmission Date: 20050211
  Serious: Yes (Hospitalization)
  Sender: FDA-Public Use
  Company Number: 2004IC000052

PATIENT
  Age: 67 Year
  Sex: Male

DRUGS (3)
  1. EFUDEX [Suspect]
     Dosage: TOPICAL
     Route: 061
     Dates: start: 20031201
  2. LEVOTHYROXINE SODIUM [Concomitant]
  3. ASPIRIN [Concomitant]

REACTIONS (1)
  - THROMBOCYTOPENIA [None]
